FAERS Safety Report 5891661-9 (Version None)
Quarter: 2008Q3

REPORT INFORMATION
  Report Type: 
  Country: None (occurrence: None)
  Receive Date: 20080922
  Receipt Date: 20080918
  Transmission Date: 20090109
  Serious: Yes (Hospitalization)
  Sender: FDA-Public Use
  Company Number: US-BRISTOL-MYERS SQUIBB COMPANY-14339162

PATIENT
  Age: 55 Year
  Sex: Male
  Weight: 84 kg

DRUGS (1)
  1. SPRYCEL [Suspect]
     Indication: ADENOCARCINOMA PANCREAS
     Dosage: LAST DOSE:02SEP08
     Route: 048
     Dates: start: 20080826

REACTIONS (1)
  - PULMONARY EMBOLISM [None]
